FAERS Safety Report 4947063-2 (Version None)
Quarter: 2006Q1

REPORT INFORMATION
  Report Type: 
  Country: None (occurrence: None)
  Receive Date: 20060314
  Receipt Date: 20060303
  Transmission Date: 20060701
  Serious: Yes (Hospitalization)
  Sender: FDA-Public Use
  Company Number: A-US2006-11676

PATIENT
  Age: 12 Month
  Sex: Female
  Weight: 6.6 kg

DRUGS (7)
  1. TRACLEER [Suspect]
     Indication: PULMONARY HYPERTENSION
     Dosage: 31.25 MG, BID, ORAL
     Route: 048
     Dates: start: 20050527, end: 20051201
  2. REVATIO [Concomitant]
  3. NEOSURE [Concomitant]
  4. ROCEPHIN [Concomitant]
  5. OXYGEN (OXYGEN) [Concomitant]
  6. I.V. SOLUTIONS [Concomitant]
  7. LASIX [Concomitant]

REACTIONS (8)
  - CARDIO-RESPIRATORY ARREST [None]
  - HEPATOCELLULAR DAMAGE [None]
  - LARYNGOMALACIA [None]
  - OTITIS MEDIA [None]
  - OXYGEN SATURATION DECREASED [None]
  - PYREXIA [None]
  - RESPIRATORY FAILURE [None]
  - WHITE BLOOD CELL COUNT INCREASED [None]
